FAERS Safety Report 6765149-7 (Version None)
Quarter: 2010Q2

REPORT INFORMATION
  Report Type: 
  Country: None (occurrence: None)
  Receive Date: 20100610
  Receipt Date: 20100610
  Transmission Date: 20101027
  Serious: No
  Sender: FDA-Public Use
  Company Number: None

PATIENT
  Sex: Male
  Weight: 65.7716 kg

DRUGS (3)
  1. REGLAN [Suspect]
     Indication: GASTROOESOPHAGEAL REFLUX DISEASE
     Dates: start: 20061117, end: 20071117
  2. REGLAN [Suspect]
     Indication: GASTROOESOPHAGEAL REFLUX DISEASE
     Dates: start: 20080819, end: 20080922
  3. REGLAN [Suspect]
     Dates: start: 20080225

REACTIONS (7)
  - DYSKINESIA [None]
  - MOVEMENT DISORDER [None]
  - MUSCULOSKELETAL DISORDER [None]
  - OEDEMA MOUTH [None]
  - POSTURE ABNORMAL [None]
  - SACCADIC EYE MOVEMENT [None]
  - SWOLLEN TONGUE [None]
